FAERS Safety Report 6023623-5 (Version None)
Quarter: 2008Q4

REPORT INFORMATION
  Report Type: 
  Country: None (occurrence: None)
  Receive Date: 20081230
  Receipt Date: 20081222
  Transmission Date: 20090506
  Serious: No
  Sender: FDA-Public Use
  Company Number: US-JNJFOC-20081206093

PATIENT
  Sex: Male
  Weight: 47.63 kg

DRUGS (6)
  1. FENTANYL TRANSDERMAL SYSTEM [Suspect]
     Indication: CANCER PAIN
     Route: 062
  2. ATIVAN [Concomitant]
     Indication: NERVOUSNESS
     Route: 048
  3. ELAVIL [Concomitant]
     Indication: NERVOUSNESS
     Route: 048
  4. MORPHINE [Concomitant]
     Indication: PAIN
     Route: 048
  5. KEFLEX [Concomitant]
     Indication: INFECTION
     Route: 048
  6. DIFLUCAN [Concomitant]
     Indication: FUNGAL INFECTION
     Route: 048

REACTIONS (1)
  - WRONG TECHNIQUE IN DRUG USAGE PROCESS [None]
